FAERS Safety Report 5677624-7 (Version None)
Quarter: 2008Q1

REPORT INFORMATION
  Report Type: 
  Country: None (occurrence: None)
  Receive Date: 20080324
  Receipt Date: 20080320
  Transmission Date: 20080703
  Serious: Yes (Hospitalization)
  Sender: FDA-Public Use
  Company Number: BR-ASTRAZENECA-2008UW05697

PATIENT
  Age: 68 Year
  Sex: Female
  Weight: 60 kg

DRUGS (13)
  1. ARIMIDEX [Suspect]
     Indication: BREAST CANCER
     Route: 048
     Dates: start: 20060901
  2. FASLODEX [Suspect]
     Indication: BREAST CANCER
     Route: 058
     Dates: start: 20071101, end: 20071101
  3. INSULINA [Concomitant]
     Indication: DIABETES MELLITUS
     Route: 058
  4. ZOMETA [Concomitant]
     Indication: OSTEOPOROSIS
     Route: 058
     Dates: start: 19900101
  5. NEURONTIN [Concomitant]
     Indication: NEUROPATHY PERIPHERAL
     Route: 048
     Dates: start: 20030101
  6. ACETAMINOPHEN W/ CODEINE [Concomitant]
     Indication: PAIN
     Route: 048
     Dates: start: 20060101
  7. AMITEDON [Concomitant]
     Indication: PAIN
     Route: 048
     Dates: start: 20060101
  8. CODATEN [Concomitant]
     Indication: PAIN
     Route: 048
     Dates: start: 20060101
  9. PREXIGE [Concomitant]
     Indication: PAIN
     Route: 048
     Dates: start: 20060101
  10. ADALAT [Concomitant]
     Indication: HYPERTENSION
     Route: 048
     Dates: start: 19980101
  11. ASPIRIN [Concomitant]
     Indication: ANTICOAGULANT THERAPY
     Route: 048
     Dates: start: 19990101
  12. ANCORON [Concomitant]
     Route: 048
     Dates: start: 19890101
  13. LORAX [Concomitant]
     Indication: DEPRESSION
     Route: 048
     Dates: start: 19890101

REACTIONS (7)
  - ABDOMINAL PAIN [None]
  - BREAST MASS [None]
  - DIARRHOEA [None]
  - FALL [None]
  - MYALGIA [None]
  - NAUSEA [None]
  - SKULL FRACTURE [None]
